FAERS Safety Report 7795387-6 (Version None)
Quarter: 2011Q4

REPORT INFORMATION
  Report Type: 
  Country: None (occurrence: None)
  Receive Date: 20111004
  Receipt Date: 20110920
  Transmission Date: 20120403
  Serious: Yes (Hospitalization)
  Sender: FDA-Public Use
  Company Number: US-UCBSA-042309

PATIENT
  Age: 34 Month
  Sex: Male

DRUGS (1)
  1. PREDNISOLONE [Suspect]
     Dosage: 2MG/KG

REACTIONS (2)
  - DRUG INEFFECTIVE [None]
  - CONDITION AGGRAVATED [None]
